FAERS Safety Report 14536690 (Version 1)
Quarter: 2018Q1

REPORT INFORMATION
  Report Type: Spontaneous
  Country: FR (occurrence: FR)
  Receive Date: 20180215
  Receipt Date: 20180215
  Transmission Date: 20180509
  Serious: Yes (Other)
  Sender: FDA-Public Use
  Company Number: FR-GILEAD-2017-0265355

PATIENT
  Age: 68 Year
  Sex: Male

DRUGS (4)
  1. VIREAD [Suspect]
     Active Substance: TENOFOVIR DISOPROXIL FUMARATE
     Indication: HIV INFECTION
     Dosage: UNK
     Route: 065
     Dates: start: 20030417, end: 20050301
  2. NORVIR [Concomitant]
     Active Substance: RITONAVIR
     Indication: HIV INFECTION
     Dosage: UNK
     Dates: start: 20030417, end: 20050301
  3. AGENERASE [Concomitant]
     Active Substance: AMPRENAVIR
     Indication: HIV INFECTION
     Dosage: UNK
     Dates: start: 20030417, end: 20050301
  4. VIDEX [Concomitant]
     Active Substance: DIDANOSINE
     Indication: HIV INFECTION
     Dosage: UNK
     Dates: start: 20030417, end: 20050301

REACTIONS (4)
  - Overdose [Recovered/Resolved]
  - Drug ineffective [Recovered/Resolved]
  - Drug intolerance [Unknown]
  - Genotype drug resistance test positive [Unknown]

NARRATIVE: CASE EVENT DATE: 2005
